FAERS Safety Report 12246593 (Version 1)
Quarter: 2016Q2

REPORT INFORMATION
  Report Type: Spontaneous
  Country: HN (occurrence: HN)
  Receive Date: 20160407
  Receipt Date: 20160407
  Transmission Date: 20160815
  Serious: Yes (Other)
  Sender: FDA-Public Use
  Company Number: HN-ELI_LILLY_AND_COMPANY-HN201604000138

PATIENT
  Sex: Male

DRUGS (1)
  1. TADALAFIL [Suspect]
     Active Substance: TADALAFIL
     Indication: PRODUCT USED FOR UNKNOWN INDICATION
     Dosage: 20 MG, OF FOUR DOSES HE TOOK ONE EVERY WEEK
     Route: 065

REACTIONS (1)
  - Retinal haemorrhage [Unknown]
